FAERS Safety Report 18996530 (Version 1)
Quarter: 2021Q1

REPORT INFORMATION
  Report Type: Spontaneous
  Country: US (occurrence: US)
  Receive Date: 20210311
  Receipt Date: 20210311
  Transmission Date: 20210420
  Serious: Yes (Life-Threatening, Disabling)
  Sender: FDA-Public Use
  Company Number: None

PATIENT
  Age: 58 Year
  Sex: Female
  Weight: 76.5 kg

DRUGS (1)
  1. CHLORHEXIDINE ORAL RINSE 0.12% [Suspect]
     Active Substance: CHLORHEXIDINE GLUCONATE
     Indication: NONINFECTIVE GINGIVITIS
     Dosage: ?          QUANTITY:1 BOTTLE;OTHER FREQUENCY:2X/DAY MORNING/EVE;??
     Route: 048

REACTIONS (7)
  - Pyrexia [None]
  - Skin burning sensation [None]
  - Rash pruritic [None]
  - Paranasal sinus inflammation [None]
  - Rash [None]
  - Suspected product contamination [None]
  - Endodontic procedure [None]

NARRATIVE: CASE EVENT DATE: 20200815
